FAERS Safety Report 23698488 (Version 1)
Quarter: 2024Q2

REPORT INFORMATION
  Report Type: Spontaneous
  Country: US (occurrence: US)
  Receive Date: 20240402
  Receipt Date: 20240402
  Transmission Date: 20240715
  Serious: No
  Sender: FDA-Public Use
  Company Number: US-SA-SAC20240326000589

PATIENT
  Sex: Male
  Weight: 98.4 kg

DRUGS (2)
  1. DUPIXENT [Suspect]
     Active Substance: DUPILUMAB
     Indication: Dermatitis
     Dosage: 300 MG, QOW
     Route: 058
  2. CIBINQO [Suspect]
     Active Substance: ABROCITINIB
     Dates: start: 20240316

REACTIONS (1)
  - Product use in unapproved indication [Unknown]
